FAERS Safety Report 14506689 (Version 1)
Quarter: 2018Q1

REPORT INFORMATION
  Report Type: Report from Study
  Country: JP (occurrence: JP)
  Receive Date: 20180208
  Receipt Date: 20180208
  Transmission Date: 20180509
  Serious: Yes (Other)
  Sender: FDA-Public Use
  Company Number: JP-MYLANLABS-2018M1008005

PATIENT
  Age: 48 Year
  Sex: Female

DRUGS (6)
  1. HALOPERIDOL. [Suspect]
     Active Substance: HALOPERIDOL
     Indication: ANXIETY
     Dosage: 2.4 MG/DAY FOR 100 DAYS
     Route: 065
  2. DIAZEPAM. [Suspect]
     Active Substance: DIAZEPAM
     Indication: ANXIETY
     Route: 065
  3. CHLORPROMAZINE. [Suspect]
     Active Substance: CHLORPROMAZINE
     Indication: ANXIETY
     Route: 065
  4. DIAZEPAM. [Suspect]
     Active Substance: DIAZEPAM
     Indication: CONVERSION DISORDER
  5. HALOPERIDOL. [Suspect]
     Active Substance: HALOPERIDOL
     Indication: CONVERSION DISORDER
  6. CHLORPROMAZINE. [Suspect]
     Active Substance: CHLORPROMAZINE
     Indication: CONVERSION DISORDER

REACTIONS (3)
  - Parkinsonism [Unknown]
  - Extrapyramidal disorder [Unknown]
  - Encephalopathy [Unknown]
